FAERS Safety Report 4551015-4 (Version None)
Quarter: 2005Q1

REPORT INFORMATION
  Report Type: 
  Country: None (occurrence: None)
  Receive Date: 20050113
  Receipt Date: 20041015
  Transmission Date: 20050727
  Serious: No
  Sender: FDA-Public Use
  Company Number: US-BRISTOL-MYERS SQUIBB COMPANY-12737102

PATIENT
  Age: 41 Year
  Sex: Female

DRUGS (2)
  1. CARDIOLITE [Suspect]
     Indication: SCAN PARATHYROID
     Route: 051
     Dates: start: 20041007, end: 20041009
  2. AMITRIPTYLINE [Concomitant]

REACTIONS (2)
  - NAUSEA [None]
  - TREMOR [None]
